FAERS Safety Report 5536084-7 (Version None)
Quarter: 2007Q4

REPORT INFORMATION
  Report Type: 
  Country: None (occurrence: None)
  Receive Date: 20071206
  Receipt Date: 20071203
  Transmission Date: 20080405
  Serious: Yes (Death, Other)
  Sender: FDA-Public Use
  Company Number: GB-WYE-G00718207

PATIENT
  Age: 65 Year
  Sex: Female
  Weight: 75 kg

DRUGS (11)
  1. IBUPROFEN [Suspect]
     Dosage: 1200 MG UNKNOWN FREQUENCY
     Route: 048
     Dates: end: 20071023
  2. CHLORPROMAZINE [Concomitant]
     Dosage: 400 MG UNKNOWN FREQUENCY
     Route: 048
     Dates: start: 19951120
  3. CO-CODAMOL [Concomitant]
     Dosage: UNKNOWN DOSE 4 TAB PER DAY
     Route: 048
     Dates: start: 20071112
  4. DIAZEPAM [Concomitant]
     Dosage: 15 MG UNKNOWN FREQUENCY
     Route: 048
     Dates: start: 20061206
  5. DOSULEPIN [Concomitant]
     Dosage: 125 MG UNKNOWN FREQUENCY
     Route: 048
     Dates: start: 20061027
  6. PROCYCLIDINE HYDROCHLORIDE 2MG TAB [Concomitant]
     Dosage: 15 MG UNKNOWN FREQUENCY
     Route: 048
     Dates: start: 20071115
  7. LEVOTHYROXINE SODIUM [Concomitant]
     Dosage: 75 MCG UNKNOWN FREQUENCY
     Route: 048
     Dates: start: 20040101
  8. LANSOPRAZOLE [Concomitant]
     Dosage: 30 MG UNKNOWN FREQUENCY
     Route: 048
     Dates: start: 20071023
  9. FLUPHENAZINE DECANOATE [Concomitant]
     Route: 030
     Dates: start: 20030123
  10. ASPIRIN [Suspect]
     Dosage: 75 MG UNKNOWN FREQUENCY
     Route: 048
     Dates: start: 20070324
  11. QUININE [Concomitant]
     Dosage: 300 MG UNKNOWN FREQUENCY
     Route: 048
     Dates: start: 20070806

REACTIONS (2)
  - GASTROINTESTINAL HAEMORRHAGE [None]
  - PERFORATED ULCER [None]
